FAERS Safety Report 5730423-X (Version None)
Quarter: 2008Q2

REPORT INFORMATION
  Report Type: 
  Country: None (occurrence: None)
  Receive Date: 20080505
  Receipt Date: 20080505
  Transmission Date: 20081010
  Serious: No
  Sender: FDA-Public Use
  Company Number: None

PATIENT
  Age: 66 Year
  Sex: Female

DRUGS (1)
  1. OXALIPLATIN [Suspect]
     Indication: COLON CANCER STAGE III
     Dosage: 85 MG/M2 Q2WEEKS IV DRIP
     Route: 041
     Dates: start: 20060614, end: 20061130

REACTIONS (1)
  - NEUROPATHY PERIPHERAL [None]
